FAERS Safety Report 5953457 (Version 4)
Quarter: 2013Q1

REPORT INFORMATION
  Report Type: Spontaneous
  Country: DE (occurrence: None)
  Receive Date: 20051220
  Receipt Date: 20130125
  Transmission Date: 20140127
  Serious: Yes (Life-Threatening, Other)
  Sender: FDA-Public Use
  Company Number: 220177

PATIENT
  Age: 43 Year
  Sex: 0

DRUGS (5)
  1. RITUXIMAB [Suspect]
     Indication: NON-HODGKIN^S LYMPHOMA
     Dosage: Q3M, INTRAVENOUS
     Route: 042
     Dates: end: 20051017
  2. CYCLOPHOSPHAMIDE (CYCLOPHOSPHAMIDE) [Concomitant]
  3. DOXORUBICIN (DOXORUBICIN/DOXORUBIDIN HYDROCHLORIDE) [Concomitant]
  4. VINCRISTINE SULFATE [Concomitant]
  5. PREDNISONE [Concomitant]

REACTIONS (4)
  - Agranulocytosis [None]
  - C-reactive protein increased [None]
  - White blood cell count decreased [None]
  - Haemoglobin decreased [None]
